FAERS Safety Report 13087597 (Version 2)
Quarter: 2020Q3

REPORT INFORMATION
  Report Type: Spontaneous
  Country: None (occurrence: AU)
  Receive Date: 20170105
  Receipt Date: 20200724
  Transmission Date: 20201102
  Serious: Yes (Life-Threatening, Hospitalization, Other)
  Sender: FDA-Public Use
  Company Number: AU-ORION CORPORATION ORION PHARMA-TREX2017-0073

PATIENT
  Age: 43 Year
  Sex: Male

DRUGS (1)
  1. METHOTREXATE. [Suspect]
     Active Substance: METHOTREXATE
     Indication: PSORIASIS
     Route: 048

REACTIONS (10)
  - Photosensitivity reaction [Unknown]
  - Product prescribing error [Unknown]
  - Malaise [Recovering/Resolving]
  - Haematotoxicity [Unknown]
  - Toxicity to various agents [Unknown]
  - Overdose [Unknown]
  - Febrile neutropenia [Unknown]
  - Stomatitis [Unknown]
  - Gastrointestinal inflammation [Unknown]
  - Staphylococcal skin infection [Unknown]
